FAERS Safety Report 24653114 (Version 2)
Quarter: 2025Q1

REPORT INFORMATION
  Report Type: Spontaneous
  Country: CO (occurrence: CO)
  Receive Date: 20241122
  Receipt Date: 20250128
  Transmission Date: 20250409
  Serious: Yes (Death, Other)
  Sender: REGENERON
  Company Number: CO-SA-2024SA338082

PATIENT
  Age: 82 Year
  Sex: Male

DRUGS (1)
  1. PRALUENT [Suspect]
     Active Substance: ALIROCUMAB
     Indication: Hypercholesterolaemia
     Dosage: 150 MG, QOW
     Route: 058
     Dates: start: 2021

REACTIONS (6)
  - Myocardial infarction [Fatal]
  - Prostate cancer [Unknown]
  - Gastritis [Unknown]
  - Weight decreased [Unknown]
  - Gastrooesophageal reflux disease [Unknown]
  - Stent placement [Unknown]

NARRATIVE: CASE EVENT DATE: 20240901
